FAERS Safety Report 15313582 (Version 2)
Quarter: 2018Q3

REPORT INFORMATION
  Report Type: Spontaneous
  Country: FR (occurrence: FR)
  Receive Date: 20180824
  Receipt Date: 20180830
  Transmission Date: 20181010
  Serious: Yes (Other)
  Sender: FDA-Public Use
  Company Number: FR-CONCORDIA PHARMACEUTICALS INC.-GSH201808-003048

PATIENT
  Age: 81 Year
  Sex: Male

DRUGS (9)
  1. NOVONORM [Concomitant]
     Active Substance: REPAGLINIDE
     Dates: start: 20180425
  2. NORSET [Concomitant]
     Active Substance: MIRTAZAPINE
     Dates: start: 20180425
  3. CORDARONE [Concomitant]
     Active Substance: AMIODARONE HYDROCHLORIDE
     Dates: start: 20180425
  4. PLAQUENIL [Suspect]
     Active Substance: HYDROXYCHLOROQUINE SULFATE
     Indication: IMMUNE THROMBOCYTOPENIC PURPURA
     Route: 048
     Dates: start: 20180323, end: 20180720
  5. PREVISCAN [Concomitant]
     Dates: start: 20180425
  6. PREDNISONE. [Concomitant]
     Active Substance: PREDNISONE
  7. LANSOPRAZOLE. [Concomitant]
     Active Substance: LANSOPRAZOLE
  8. ALFUZOSIN HYDROCHLORIDE. [Concomitant]
     Active Substance: ALFUZOSIN HYDROCHLORIDE
  9. BISOPROLOL [Concomitant]
     Active Substance: BISOPROLOL

REACTIONS (1)
  - Ejection fraction decreased [Not Recovered/Not Resolved]

NARRATIVE: CASE EVENT DATE: 20180720
